FAERS Safety Report 10762423 (Version 1)
Quarter: 2015Q1

REPORT INFORMATION
  Report Type: Spontaneous
  Country: JP (occurrence: JP)
  Receive Date: 20150204
  Receipt Date: 20150204
  Transmission Date: 20150721
  Serious: Yes (Hospitalization)
  Sender: FDA-Public Use
  Company Number: PHHY2014JP150112

PATIENT
  Age: 46 Year
  Sex: Male
  Weight: 76 kg

DRUGS (3)
  1. FLUNITRAZEPAM [Concomitant]
     Active Substance: FLUNITRAZEPAM
     Indication: INSOMNIA
     Dosage: 1 MG, QD
     Route: 048
     Dates: start: 20140516, end: 20141112
  2. CLOZARIL [Suspect]
     Active Substance: CLOZAPINE
     Dosage: 325 MG DAILY (150 MG AT BEDTIME AND 175 MG IN THE EVENING)
     Route: 048
     Dates: end: 20141112
  3. CLOZARIL [Suspect]
     Active Substance: CLOZAPINE
     Indication: SCHIZOPHRENIA
     Dosage: 12.5 MG, QD
     Route: 048
     Dates: start: 20140522

REACTIONS (7)
  - Rhinorrhoea [Unknown]
  - White blood cell count decreased [Recovered/Resolved]
  - Pancytopenia [Recovered/Resolved]
  - Pyrexia [Unknown]
  - Cough [Unknown]
  - Influenza [Unknown]
  - Platelet count decreased [Recovered/Resolved]

NARRATIVE: CASE EVENT DATE: 20141112
